FAERS Safety Report 18257624 (Version 1)
Quarter: 2020Q3

REPORT INFORMATION
  Report Type: Spontaneous
  Country: CN (occurrence: CN)
  Receive Date: 20200911
  Receipt Date: 20200911
  Transmission Date: 20201103
  Serious: Yes (Other)
  Sender: FDA-Public Use
  Company Number: CN-ASTRAZENECA-2020SF14270

PATIENT
  Age: 66 Year
  Sex: Female

DRUGS (4)
  1. SYMBICORT [Suspect]
     Active Substance: BUDESONIDE\FORMOTEROL FUMARATE DIHYDRATE
     Dosage: 160 UG, TWO TIMES A DAY
     Route: 055
  2. FOSINOPRIL SODIUM. [Concomitant]
     Active Substance: FOSINOPRIL SODIUM
     Indication: BLOOD PRESSURE ABNORMAL
     Dosage: ONCE A DAY, ONCE A HALF TABLET
     Route: 048
  3. BETALOC [Concomitant]
     Active Substance: METOPROLOL TARTRATE
     Route: 048
  4. ATORVASTATIN CALCIUM. [Concomitant]
     Active Substance: ATORVASTATIN CALCIUM
     Indication: HYPOLIPIDAEMIA
     Dosage: 20MG, DOSE: TWO?THIRDS OF 20MG TABLETS, ONCE A DAY

REACTIONS (6)
  - Extrasystoles [Unknown]
  - Heart rate irregular [Unknown]
  - Cardiac arrest [Recovered/Resolved]
  - Hypotension [Unknown]
  - Blood pressure increased [Not Recovered/Not Resolved]
  - Drug tolerance decreased [Unknown]
